FAERS Safety Report 4378268-X (Version None)
Quarter: 2004Q2

REPORT INFORMATION
  Report Type: 
  Country: None (occurrence: None)
  Receive Date: 20040616
  Receipt Date: 20040610
  Transmission Date: 20050107
  Serious: Yes (Hospitalization)
  Sender: FDA-Public Use
  Company Number: US-BRISTOL-MYERS SQUIBB COMPANY-12610960

PATIENT
  Age: 53 Year

DRUGS (9)
  1. TEQUIN [Suspect]
     Indication: TOOTH ABSCESS
     Route: 048
     Dates: start: 20040520
  2. WARFARIN SODIUM [Concomitant]
  3. CLOZAPINE [Concomitant]
  4. LISINOPRIL [Concomitant]
  5. CITALOPRAM [Concomitant]
  6. SIMVASTATIN [Concomitant]
  7. CLONAZEPAM [Concomitant]
  8. SENNA [Concomitant]
     Dosage: DOSAGE FORM = TABLET
  9. ZANTAC [Concomitant]

REACTIONS (2)
  - GASTRIC ULCER [None]
  - GASTROINTESTINAL HAEMORRHAGE [None]
